FAERS Safety Report 13528931 (Version 2)
Quarter: 2017Q2

REPORT INFORMATION
  Report Type: Report from Study
  Country: US (occurrence: US)
  Receive Date: 20170509
  Receipt Date: 20170526
  Transmission Date: 20170830
  Serious: Yes (Death)
  Sender: FDA-Public Use
  Company Number: US-ACTELION-A-NJ2017-153442

PATIENT
  Age: 84 Year
  Sex: Female

DRUGS (11)
  1. TRACLEER [Suspect]
     Active Substance: BOSENTAN
     Indication: PULMONARY ARTERIAL HYPERTENSION
     Dosage: 125 MG, BID
     Route: 048
  2. LORAZEPAM. [Concomitant]
     Active Substance: LORAZEPAM
  3. IBUPROFEN. [Concomitant]
     Active Substance: IBUPROFEN
  4. AZELASTINE [Concomitant]
     Active Substance: AZELASTINE
  5. KLOR-CON [Concomitant]
     Active Substance: POTASSIUM CHLORIDE
  6. CLARITIN [Concomitant]
     Active Substance: LORATADINE
  7. IRON [Concomitant]
     Active Substance: IRON
  8. LISINOPRIL. [Concomitant]
     Active Substance: LISINOPRIL
  9. MUCINEX [Concomitant]
     Active Substance: GUAIFENESIN
  10. SILDENAFIL. [Concomitant]
     Active Substance: SILDENAFIL
  11. FUROSEMIDE. [Concomitant]
     Active Substance: FUROSEMIDE

REACTIONS (1)
  - Death [Fatal]

NARRATIVE: CASE EVENT DATE: 20170429
